FAERS Safety Report 8588085-2 (Version None)
Quarter: 2012Q3

REPORT INFORMATION
  Report Type: 
  Country: None (occurrence: None)
  Receive Date: 20120813
  Receipt Date: 20120806
  Transmission Date: 20120928
  Serious: No
  Sender: FDA-Public Use
  Company Number: US-PFIZER INC-2012192378

PATIENT
  Age: 49 Year
  Sex: Female
  Weight: 54 kg

DRUGS (4)
  1. GABAPENTIN [Suspect]
     Indication: NERVE INJURY
     Dosage: 300 MG, 3X/DAY
     Dates: start: 20030101
  2. OMEPRAZOLE [Concomitant]
     Dosage: 20 MG, DAILY
  3. LYRICA [Suspect]
     Indication: NERVE INJURY
     Dosage: UNK
     Dates: end: 20120101
  4. GABAPENTIN [Suspect]
     Dosage: UNK
     Dates: start: 20120101, end: 20120101

REACTIONS (8)
  - RESTLESS LEGS SYNDROME [None]
  - DRUG INEFFECTIVE [None]
  - NEURALGIA [None]
  - HYPOAESTHESIA [None]
  - ANXIETY [None]
  - DYSGEUSIA [None]
  - MUSCULAR WEAKNESS [None]
  - FEELING ABNORMAL [None]
